FAERS Safety Report 6129287-4 (Version None)
Quarter: 2009Q1

REPORT INFORMATION
  Report Type: 
  Country: None (occurrence: None)
  Receive Date: 20090323
  Receipt Date: 20090323
  Transmission Date: 20090719
  Serious: No
  Sender: FDA-Public Use
  Company Number: None

PATIENT
  Age: 68 Year
  Sex: Male

DRUGS (1)
  1. VORINOSTAT [Suspect]
     Indication: MYCOSIS FUNGOIDES
     Dosage: 200 MG EVERY DAY PO
     Route: 048
     Dates: start: 20071231, end: 20080205

REACTIONS (2)
  - HEPATIC ENZYME INCREASED [None]
  - RASH [None]
